FAERS Safety Report 14641867 (Version 1)
Quarter: 2018Q1

REPORT INFORMATION
  Report Type: Spontaneous
  Country: PT (occurrence: PT)
  Receive Date: 20180315
  Receipt Date: 20180315
  Transmission Date: 20180509
  Serious: Yes (Disabling)
  Sender: FDA-Public Use
  Company Number: PT-PFIZER INC-2018101895

PATIENT
  Age: 80 Year
  Sex: Male

DRUGS (1)
  1. ATORVASTATINA [Suspect]
     Active Substance: ATORVASTATIN
     Dosage: UNK
     Dates: start: 20170820, end: 20170917

REACTIONS (2)
  - Myalgia [Recovered/Resolved]
  - Asthenia [Recovered/Resolved]

NARRATIVE: CASE EVENT DATE: 201708
